FAERS Safety Report 22212351 (Version 1)
Quarter: 2023Q2

REPORT INFORMATION
  Report Type: Spontaneous
  Country: DE (occurrence: None)
  Receive Date: 20230414
  Receipt Date: 20230414
  Transmission Date: 20230722
  Serious: Yes (Disabling, Other)
  Sender: FDA-Public Use
  Company Number: 2023A084567

PATIENT
  Age: 52 Year
  Sex: Male
  Weight: 76 kg

DRUGS (4)
  1. SYMBICORT [Suspect]
     Active Substance: BUDESONIDE\FORMOTEROL FUMARATE DIHYDRATE
     Route: 055
  2. SABUTAMOL [Concomitant]
  3. ALPRAZOLAM [Concomitant]
     Active Substance: ALPRAZOLAM
  4. UNSPECIFIED INGREDIENT [Concomitant]
     Active Substance: UNSPECIFIED INGREDIENT

REACTIONS (7)
  - Forced expiratory volume decreased [Unknown]
  - Deafness [Unknown]
  - Dyspnoea exertional [Unknown]
  - Tinnitus [Unknown]
  - Asthma [Unknown]
  - Neurodermatitis [Unknown]
  - Allergy to metals [Unknown]

NARRATIVE: CASE EVENT DATE: 20020101
